FAERS Safety Report 20085442 (Version 1)
Quarter: 2021Q4

REPORT INFORMATION
  Report Type: Spontaneous
  Country: US (occurrence: None)
  Receive Date: 20211117
  Receipt Date: 20211117
  Transmission Date: 20220303
  Serious: Yes (Hospitalization)
  Sender: FDA-Public Use
  Company Number: None

PATIENT
  Age: 54 Year
  Sex: Male

DRUGS (1)
  1. CASIRIVIMAB\IMDEVIMAB [Suspect]
     Active Substance: CASIRIVIMAB\IMDEVIMAB
     Indication: COVID-19
     Dosage: OTHER FREQUENCY : ONE TIME;?
     Route: 058
     Dates: start: 20211117, end: 20211117

REACTIONS (7)
  - Fall [None]
  - Haemorrhage [None]
  - Pallor [None]
  - Hyperhidrosis [None]
  - Depressed level of consciousness [None]
  - Vomiting [None]
  - Presyncope [None]

NARRATIVE: CASE EVENT DATE: 20211117
